FAERS Safety Report 21890645 (Version 1)
Quarter: 2023Q1

REPORT INFORMATION
  Report Type: Other
  Country: US (occurrence: None)
  Receive Date: 20230120
  Receipt Date: 20230120
  Transmission Date: 20230417
  Serious: Yes (Other)
  Sender: FDA-Public Use
  Company Number: US-ROCHE-3267517

PATIENT
  Age: 66 Year
  Sex: Female

DRUGS (10)
  1. OCRELIZUMAB [Suspect]
     Active Substance: OCRELIZUMAB
     Indication: Relapsing-remitting multiple sclerosis
     Dosage: HALF DOSE - A WEEK LATER REMAINING HALF DOSE?INFUSE 300 MG IV OVER 2.5 HOURS ON DAY 1
     Route: 042
     Dates: start: 20220628
  2. YUVAFEM [Concomitant]
     Active Substance: ESTRADIOL HEMIHYDRATE
     Dosage: VAGINAL INSERT
     Route: 067
     Dates: start: 2020
  3. VITAMINS [Concomitant]
     Active Substance: VITAMINS
     Route: 048
  4. VITAMIN C [Concomitant]
     Active Substance: ASCORBIC ACID
     Route: 048
  5. D-MANNOSE [Concomitant]
     Route: 048
  6. MAGNESIUM [Concomitant]
     Active Substance: MAGNESIUM
     Route: 048
  7. VITAMIN D3 [Concomitant]
     Active Substance: CHOLECALCIFEROL
     Route: 048
  8. DOXYCYCLINE [Concomitant]
     Active Substance: DOXYCYCLINE
  9. DILTIAZEM [Concomitant]
     Active Substance: DILTIAZEM
  10. NITROFURANTOIN [Concomitant]
     Active Substance: NITROFURANTOIN

REACTIONS (4)
  - Pneumonia [Recovered/Resolved]
  - Ear infection [Not Recovered/Not Resolved]
  - Sinusitis [Recovered/Resolved]
  - Ear disorder [Recovering/Resolving]

NARRATIVE: CASE EVENT DATE: 20221201
